FAERS Safety Report 8259590-3 (Version None)
Quarter: 2012Q2

REPORT INFORMATION
  Report Type: 
  Country: None (occurrence: None)
  Receive Date: 20120404
  Receipt Date: 20120328
  Transmission Date: 20120825
  Serious: Yes (Hospitalization)
  Sender: FDA-Public Use
  Company Number: PHHY2012BR027536

PATIENT
  Sex: Male

DRUGS (2)
  1. TEGRETOL-XR [Suspect]
     Dosage: 200 MG, UNK
  2. TEGRETOL-XR [Suspect]
     Dosage: 400 MG, UNK

REACTIONS (1)
  - EPILEPSY [None]
